FAERS Safety Report 14785105 (Version 1)
Quarter: 2018Q2

REPORT INFORMATION
  Report Type: Spontaneous
  Country: CN (occurrence: CN)
  Receive Date: 20180420
  Receipt Date: 20180420
  Transmission Date: 20180711
  Serious: Yes (Hospitalization, Other)
  Sender: FDA-Public Use
  Company Number: CN-PFIZER INC-2018155164

PATIENT
  Age: 45 Year
  Sex: Male

DRUGS (2)
  1. LIPITOR [Suspect]
     Active Substance: ATORVASTATIN CALCIUM
     Dosage: 40 MG, 1X/DAY
     Dates: start: 20180404, end: 20180413
  2. TICAGRELOR. [Concomitant]
     Active Substance: TICAGRELOR
     Dosage: UNK

REACTIONS (7)
  - Hepatic pain [Unknown]
  - Disorganised speech [Unknown]
  - Liver induration [Unknown]
  - Hepatic function abnormal [Unknown]
  - Hepatomegaly [Unknown]
  - Haemoglobin decreased [Unknown]
  - Platelet count decreased [Unknown]

NARRATIVE: CASE EVENT DATE: 201804
